FAERS Safety Report 23303581 (Version 2)
Quarter: 2024Q1

REPORT INFORMATION
  Report Type: Spontaneous
  Country: US (occurrence: US)
  Receive Date: 20231215
  Receipt Date: 20240314
  Transmission Date: 20240409
  Serious: No
  Sender: FDA-Public Use
  Company Number: US-BRISTOL-MYERS SQUIBB COMPANY-2023-182012

PATIENT
  Age: 59 Year
  Sex: Female
  Weight: 73.03 kg

DRUGS (1)
  1. REVLIMID [Suspect]
     Active Substance: LENALIDOMIDE
     Indication: Plasma cell myeloma
     Route: 048
     Dates: start: 20240201

REACTIONS (5)
  - Constipation [Unknown]
  - Dizziness [Unknown]
  - Off label use [Unknown]
  - Paraesthesia [Recovering/Resolving]
  - Peripheral swelling [Recovering/Resolving]
